FAERS Safety Report 18386857 (Version 1)
Quarter: 2020Q4

REPORT INFORMATION
  Report Type: Spontaneous
  Country: US (occurrence: US)
  Receive Date: 20201014
  Receipt Date: 20201014
  Transmission Date: 20210114
  Serious: Yes (Death)
  Sender: FDA-Public Use
  Company Number: None

PATIENT
  Age: 66 Year
  Sex: Male
  Weight: 81.2 kg

DRUGS (32)
  1. REMDESIVIR SOLUTION 100 MG VIAL [Suspect]
     Active Substance: REMDESIVIR
     Indication: COVID-19 PNEUMONIA
     Route: 042
     Dates: start: 20200814, end: 20200814
  2. CLONIDINE. [Concomitant]
     Active Substance: CLONIDINE
  3. DEXAMETHASONE. [Concomitant]
     Active Substance: DEXAMETHASONE
  4. MORPHINE SULFATE SR [Concomitant]
     Active Substance: MORPHINE SULFATE
  5. ASPIRIN. [Concomitant]
     Active Substance: ASPIRIN
  6. ONDANSETRON [Concomitant]
     Active Substance: ONDANSETRON
  7. TRAMADOL. [Concomitant]
     Active Substance: TRAMADOL
  8. MELATONIN [Concomitant]
     Active Substance: MELATONIN
  9. MEROPENEM. [Concomitant]
     Active Substance: MEROPENEM
  10. NOREPINEPHRINE. [Concomitant]
     Active Substance: NOREPINEPHRINE
  11. PHENYTOIN. [Concomitant]
     Active Substance: PHENYTOIN
  12. POLYETHYLENE GLYCOL [Concomitant]
     Active Substance: POLYETHYLENE GLYCOLS
  13. SIMVASTATIN. [Concomitant]
     Active Substance: SIMVASTATIN
  14. BACLOFEN. [Concomitant]
     Active Substance: BACLOFEN
  15. ALBUTEROL. [Concomitant]
     Active Substance: ALBUTEROL
  16. GABAPENTIN. [Concomitant]
     Active Substance: GABAPENTIN
  17. LEVETRIACETAM [Concomitant]
     Active Substance: LEVETIRACETAM
  18. MUPIROCIN. [Concomitant]
     Active Substance: MUPIROCIN
  19. REMDESIVIR SOLUTION 100 MG VIAL [Suspect]
     Active Substance: REMDESIVIR
     Indication: COVID-19 PNEUMONIA
     Route: 042
     Dates: start: 20200815, end: 20200818
  20. HALOPERIDOL LACTATE. [Concomitant]
     Active Substance: HALOPERIDOL LACTATE
  21. INSULIN DETEMIR [Concomitant]
     Active Substance: INSULIN DETEMIR
  22. INSULIN REGULAR [Concomitant]
     Active Substance: INSULIN NOS
  23. PIPERACILLIN AND TAZOBACTAM [Concomitant]
     Active Substance: PIPERACILLIN SODIUM\TAZOBACTAM SODIUM
  24. VANCOMYCIN [Concomitant]
     Active Substance: VANCOMYCIN
  25. CHLORHEXIDINE [Concomitant]
     Active Substance: CHLORHEXIDINE
  26. METOPROLOL TARTRATE. [Concomitant]
     Active Substance: METOPROLOL TARTRATE
  27. ACETAMINOPHEN. [Concomitant]
     Active Substance: ACETAMINOPHEN
  28. ENOXAPARIN [Concomitant]
     Active Substance: ENOXAPARIN
  29. FAMOTIDINE. [Concomitant]
     Active Substance: FAMOTIDINE
  30. FUROSEMIDE. [Concomitant]
     Active Substance: FUROSEMIDE
  31. POTASSIUM CHLORIDE. [Concomitant]
     Active Substance: POTASSIUM CHLORIDE
  32. QUIETIAPINE [Concomitant]
     Active Substance: QUETIAPINE

REACTIONS (2)
  - General physical health deterioration [None]
  - Pulse absent [None]

NARRATIVE: CASE EVENT DATE: 20200819
